FAERS Safety Report 7816587-2 (Version None)
Quarter: 2011Q4

REPORT INFORMATION
  Report Type: 
  Country: None (occurrence: None)
  Receive Date: 20111017
  Receipt Date: 20111006
  Transmission Date: 20120403
  Serious: Yes (Other)
  Sender: FDA-Public Use
  Company Number: AU-JNJFOC-20111003606

PATIENT
  Sex: Male

DRUGS (2)
  1. INVEGA SUSTENNA [Suspect]
     Indication: PRODUCT USED FOR UNKNOWN INDICATION
     Route: 030
     Dates: start: 20110627
  2. INVEGA SUSTENNA [Suspect]
     Route: 030
     Dates: start: 20110504

REACTIONS (2)
  - OVERDOSE [None]
  - CONDITION AGGRAVATED [None]
